FAERS Safety Report 18543397 (Version 1)
Quarter: 2020Q4

REPORT INFORMATION
  Report Type: Report from Study
  Country: US (occurrence: US)
  Receive Date: 20201125
  Receipt Date: 20201125
  Transmission Date: 20210114
  Serious: Yes (Other)
  Sender: FDA-Public Use
  Company Number: US-JNJFOC-20201136894

PATIENT
  Age: 44 Year
  Sex: Female

DRUGS (2)
  1. USTEKINUMAB [Suspect]
     Active Substance: USTEKINUMAB
     Indication: CROHN^S DISEASE
     Route: 058
     Dates: start: 20180330
  2. USTEKINUMAB [Suspect]
     Active Substance: USTEKINUMAB

REACTIONS (1)
  - Neoplasm malignant [Not Recovered/Not Resolved]
